FAERS Safety Report 5384271-3 (Version None)
Quarter: 2007Q3

REPORT INFORMATION
  Report Type: 
  Country: None (occurrence: None)
  Receive Date: 20070710
  Receipt Date: 20060621
  Transmission Date: 20080115
  Serious: Yes (Hospitalization)
  Sender: FDA-Public Use
  Company Number: 2006-01531

PATIENT
  Sex: Female
  Weight: 177 kg

DRUGS (7)
  1. VELCADE [Suspect]
     Indication: MULTIPLE MYELOMA
     Dosage: 1.30 MG/M2
     Dates: start: 20060602
  2. CYCLOSPORINE [Concomitant]
  3. METHYLPREDNISOLONE 16MG TAB [Concomitant]
  4. METRONIDAZOLE [Concomitant]
  5. CEFEPIME [Concomitant]
  6. VITAMIN B COMPLEX WITH C (THIAMINE MONONITRATE, CALCIUM PANTOTHENATE, [Concomitant]
  7. SEVELAMER HYDROCHLORIDE [Concomitant]

REACTIONS (1)
  - PNEUMONIA ASPIRATION [None]
